FAERS Safety Report 7093046-9 (Version None)
Quarter: 2010Q4

REPORT INFORMATION
  Report Type: 
  Country: None (occurrence: None)
  Receive Date: 20101105
  Receipt Date: 20101105
  Transmission Date: 20110411
  Serious: No
  Sender: FDA-Public Use
  Company Number: None

PATIENT
  Age: 31 Year
  Sex: Female

DRUGS (4)
  1. LISINOPRIL [Suspect]
     Indication: LIVER INJURY
     Dates: start: 20080221, end: 20080809
  2. PREDNISONE [Concomitant]
  3. STEROIDS [Concomitant]
  4. RITUXIMAB [Concomitant]

REACTIONS (8)
  - ARTHRALGIA [None]
  - ASTHENIA [None]
  - HEADACHE [None]
  - HEPATITIS CHRONIC ACTIVE [None]
  - IMPAIRED WORK ABILITY [None]
  - JAUNDICE [None]
  - JOINT SWELLING [None]
  - MALAISE [None]
